FAERS Safety Report 9428614 (Version 1)
Quarter: 2013Q3

REPORT INFORMATION
  Report Type: Report from Study
  Country: US (occurrence: US)
  Receive Date: 20130730
  Receipt Date: 20130730
  Transmission Date: 20140515
  Serious: No
  Sender: FDA-Public Use
  Company Number: US-ABBOTT-12P-163-1018614-00

PATIENT
  Sex: Female
  Weight: 68.1 kg

DRUGS (5)
  1. NIASPAN (COATED) [Suspect]
     Indication: BLOOD TRIGLYCERIDES INCREASED
  2. NIASPAN (COATED) [Suspect]
     Indication: BLOOD CHOLESTEROL INCREASED
  3. BP MEDICATION [Concomitant]
     Indication: PRODUCT USED FOR UNKNOWN INDICATION
  4. REMERON [Concomitant]
     Indication: PRODUCT USED FOR UNKNOWN INDICATION
  5. VITAMIN D [Concomitant]
     Indication: PRODUCT USED FOR UNKNOWN INDICATION

REACTIONS (4)
  - Insomnia [Recovered/Resolved]
  - Pruritus [Recovered/Resolved]
  - Flushing [Recovered/Resolved]
  - Skin burning sensation [Recovered/Resolved]
